FAERS Safety Report 10332552 (Version 2)
Quarter: 2014Q3

REPORT INFORMATION
  Report Type: Spontaneous
  Country: US (occurrence: US)
  Receive Date: 20140722
  Receipt Date: 20140722
  Transmission Date: 20150326
  Serious: No
  Sender: FDA-Public Use
  Company Number: US-UNITED THERAPEUTICS-UTC-041230

PATIENT
  Sex: Male
  Weight: 103.6 kg

DRUGS (3)
  1. LETAIRIS [Suspect]
     Active Substance: AMBRISENTAN
     Dates: start: 20130509
  2. TYVASO [Suspect]
     Active Substance: TREPROSTINIL
     Dosage: 18-54 MCG
     Dates: start: 20130910
  3. ADCIRCA [Concomitant]
     Active Substance: TADALAFIL

REACTIONS (2)
  - Productive cough [Not Recovered/Not Resolved]
  - Cough [Not Recovered/Not Resolved]

NARRATIVE: CASE EVENT DATE: 2013
